FAERS Safety Report 10408408 (Version 5)
Quarter: 2014Q4

REPORT INFORMATION
  Report Type: Report from Study
  Country: JP (occurrence: JP)
  Receive Date: 20140826
  Receipt Date: 20141013
  Transmission Date: 20150528
  Serious: Yes (Death, Hospitalization)
  Sender: FDA-Public Use
  Company Number: JP-ROCHE-1447702

PATIENT
  Age: 72 Year
  Sex: Male

DRUGS (17)
  1. METHOXY POLYETHYLENE GLYCOL-EPOETIN BETA [Suspect]
     Active Substance: PEGZEREPOETIN ALFA
     Indication: NEPHROGENIC ANAEMIA
     Route: 065
     Dates: start: 20130812
  2. PRECIPITATED CALCIUM CARBONATE [Concomitant]
     Active Substance: CALCIUM CARBONATE
     Indication: HYPERPHOSPHATAEMIA
     Dosage: DOSAGE IS UNCERTAIN.
     Route: 048
     Dates: start: 20101011
  3. SELBEX [Concomitant]
     Active Substance: TEPRENONE
     Indication: GASTRITIS
     Dosage: DOSAGE IS UNCERTAIN.
     Route: 048
     Dates: start: 20101011
  4. PLAVIX [Concomitant]
     Active Substance: CLOPIDOGREL BISULFATE
     Indication: THROMBOSIS PROPHYLAXIS
     Dosage: DOSAGE IS UNCERTAIN.
     Route: 048
     Dates: start: 20121015
  5. WARFARIN [Concomitant]
     Active Substance: WARFARIN
     Indication: HYPERTENSION
     Dosage: DOSAGE IS UNCERTAIN.
     Route: 048
     Dates: start: 20131125
  6. LIVALO [Concomitant]
     Active Substance: PITAVASTATIN CALCIUM
     Indication: HYPERLIPIDAEMIA
     Dosage: DOSAGE IS UNCERTAIN.
     Route: 048
     Dates: start: 20120716
  7. NESP [Concomitant]
     Active Substance: DARBEPOETIN ALFA
     Dosage: DOSAGE IS UNCERTAIN.
     Route: 065
  8. HALCION [Concomitant]
     Active Substance: TRIAZOLAM
     Indication: INSOMNIA
     Dosage: DOSAGE IS UNCERTAIN.
     Route: 048
     Dates: start: 20101011
  9. NU-LOTAN [Concomitant]
     Active Substance: LOSARTAN POTASSIUM
     Indication: HYPERTENSION
     Dosage: DOSAGE IS UNCERTAIN.
     Route: 048
     Dates: start: 20130610
  10. BONVIVA [Concomitant]
     Active Substance: IBANDRONATE SODIUM
     Indication: OSTEOPOROSIS
     Route: 042
     Dates: start: 20140620
  11. METHOXY POLYETHYLENE GLYCOL-EPOETIN BETA [Suspect]
     Active Substance: PEGZEREPOETIN ALFA
     Route: 065
     Dates: start: 20140113
  12. LASIX [Concomitant]
     Active Substance: FUROSEMIDE
     Indication: HYPERTENSION
     Dosage: DOSAGE IS UNCERTAIN.
     Route: 048
     Dates: start: 20111114
  13. ROCALTROL [Concomitant]
     Active Substance: CALCITRIOL
     Indication: NEPHROSCLEROSIS
     Dosage: DOSAGE IS UNCERTAIN.?OTHER PURPOSES: RENAL FAILURE CHRONIC
     Route: 048
     Dates: start: 20130715
  14. EFFORTIL [Concomitant]
     Active Substance: ETILEFRINE HYDROCHLORIDE
     Dosage: DOSAGE IS UNCERTAIN.
     Route: 065
  15. NESINA [Concomitant]
     Active Substance: ALOGLIPTIN BENZOATE
     Indication: DIABETES MELLITUS
     Dosage: DOSAGE IS UNCERTAIN.
     Route: 048
     Dates: start: 20130326
  16. FESIN (JAPAN) [Concomitant]
     Indication: NEPHROGENIC ANAEMIA
     Route: 042
     Dates: start: 20120709
  17. NIFEDIPINE. [Concomitant]
     Active Substance: NIFEDIPINE
     Indication: HYPERTENSION
     Dosage: DOSAGE IS UNCERTAIN.
     Route: 048
     Dates: start: 20131104

REACTIONS (3)
  - Angina pectoris [Recovering/Resolving]
  - Cerebral infarction [Recovering/Resolving]
  - Cerebral haemorrhage [Fatal]

NARRATIVE: CASE EVENT DATE: 20140408
